FAERS Safety Report 16980509 (Version 2)
Quarter: 2019Q4

REPORT INFORMATION
  Report Type: Spontaneous
  Country: CA (occurrence: CA)
  Receive Date: 20191031
  Receipt Date: 20191111
  Transmission Date: 20200122
  Serious: No
  Sender: FDA-Public Use
  Company Number: CA-BAUSCH-BL-2019-054923

PATIENT
  Age: 73 Year
  Sex: Female

DRUGS (1)
  1. VYZULTA [Suspect]
     Active Substance: LATANOPROSTENE BUNOD
     Indication: GLAUCOMA
     Dosage: 1 DROP IN EACH EYE ONCE DAILY IN THE EVENING
     Route: 047
     Dates: start: 20190917

REACTIONS (1)
  - Ocular hyperaemia [Recovering/Resolving]

NARRATIVE: CASE EVENT DATE: 20190919
